FAERS Safety Report 5093168-8 (Version None)
Quarter: 2006Q3

REPORT INFORMATION
  Report Type: 
  Country: None (occurrence: None)
  Receive Date: 20060731
  Receipt Date: 20060525
  Transmission Date: 20061208
  Serious: No
  Sender: FDA-Public Use
  Company Number: 225809

PATIENT
  Age: 58 Year
  Sex: Female

DRUGS (1)
  1. RITUXAN [Suspect]
     Indication: LYMPHOMA
     Dosage: 695 MG,Q3W,INTRAVENOUS
     Route: 042
     Dates: start: 20050606

REACTIONS (1)
  - DYSPNOEA [None]
